FAERS Safety Report 12945589 (Version 2)
Quarter: 2017Q1

REPORT INFORMATION
  Report Type: Report from Study
  Country: US (occurrence: US)
  Receive Date: 20161116
  Receipt Date: 20170112
  Transmission Date: 20170428
  Serious: Yes (Hospitalization)
  Sender: FDA-Public Use
  Company Number: US-BIOGEN-2016BI00317083

PATIENT
  Age: 77 Year
  Sex: Female

DRUGS (3)
  1. TYSABRI [Suspect]
     Active Substance: NATALIZUMAB
     Indication: MULTIPLE SCLEROSIS
     Route: 065
     Dates: start: 20140328, end: 20161010
  2. TYSABRI [Suspect]
     Active Substance: NATALIZUMAB
     Route: 065
     Dates: start: 20071130, end: 20140102
  3. TYSABRI [Suspect]
     Active Substance: NATALIZUMAB
     Route: 065
     Dates: start: 20071201

REACTIONS (12)
  - Abdominal distension [Recovered/Resolved]
  - Pneumonia [Recovered/Resolved]
  - Abasia [Unknown]
  - Pancreatitis [Recovered/Resolved]
  - Drug effect decreased [Recovered/Resolved]
  - Abdominal pain upper [Recovered/Resolved]
  - Speech disorder [Not Recovered/Not Resolved]
  - Pancreatic enzymes increased [Recovered/Resolved]
  - Multiple sclerosis relapse [Not Recovered/Not Resolved]
  - Decreased immune responsiveness [Not Recovered/Not Resolved]
  - Limb discomfort [Not Recovered/Not Resolved]
  - Hypoaesthesia [Not Recovered/Not Resolved]

NARRATIVE: CASE EVENT DATE: 201608
